FAERS Safety Report 16264245 (Version 1)
Quarter: 2019Q2

REPORT INFORMATION
  Report Type: Spontaneous
  Country: US (occurrence: US)
  Receive Date: 20190501
  Receipt Date: 20190501
  Transmission Date: 20190711
  Serious: No
  Sender: FDA-Public Use
  Company Number: None

PATIENT
  Age: 33 Year
  Sex: Female

DRUGS (7)
  1. LEUPROLIDE 1MG/0.2ML [Concomitant]
  2. GANIRELIX [Suspect]
     Active Substance: GANIRELIX
     Indication: INFERTILITY
     Route: 058
     Dates: start: 20190405
  3. ENDOMETRIN 100MG [Concomitant]
  4. FOLLISTIM AQ [Suspect]
     Active Substance: FOLLITROPIN
     Indication: INFERTILITY
     Route: 058
     Dates: start: 20190405
  5. PROGESTERONE 50MG/ML [Concomitant]
     Active Substance: PROGESTERONE
  6. DOXYCYCLINE 100MG [Concomitant]
     Active Substance: DOXYCYCLINE
  7. ASA 81MG [Concomitant]
     Active Substance: ASPIRIN

REACTIONS (1)
  - Pruritus [None]

NARRATIVE: CASE EVENT DATE: 20190430
